FAERS Safety Report 4959745-7 (Version None)
Quarter: 2006Q1

REPORT INFORMATION
  Report Type: 
  Country: None (occurrence: None)
  Receive Date: 20060324
  Receipt Date: 20060313
  Transmission Date: 20060701
  Serious: Yes (Other)
  Sender: FDA-Public Use
  Company Number: US200601002866

PATIENT
  Age: 50 Year
  Sex: Female

DRUGS (4)
  1. CYMBALTA [Suspect]
     Indication: DEPRESSION
     Dosage: 60 MG, ORAL
     Route: 048
     Dates: start: 20050701
  2. PROZAC [Concomitant]
  3. KLONOPIN [Concomitant]
  4. LOMOTIL [Concomitant]

REACTIONS (17)
  - ABDOMINAL PAIN UPPER [None]
  - ANOREXIA [None]
  - BREATH HOLDING [None]
  - DEPRESSION [None]
  - DIARRHOEA [None]
  - DISEASE RECURRENCE [None]
  - DRUG INEFFECTIVE [None]
  - DYSPEPSIA [None]
  - DYSPNOEA EXERTIONAL [None]
  - HEPATIC PAIN [None]
  - HEPATIC STEATOSIS [None]
  - INFLUENZA LIKE ILLNESS [None]
  - MALAISE [None]
  - MUSCULOSKELETAL CHEST PAIN [None]
  - NAUSEA [None]
  - RENAL LIPOMATOSIS [None]
  - VOMITING [None]
